FAERS Safety Report 12963498 (Version 5)
Quarter: 2018Q2

REPORT INFORMATION
  Report Type: Report from Study
  Country: US (occurrence: US)
  Receive Date: 20161122
  Receipt Date: 20180430
  Transmission Date: 20180711
  Serious: Yes (Other)
  Sender: FDA-Public Use
  Company Number: US-AMGEN-USASL2016161809

PATIENT
  Age: 81 Year
  Sex: Female

DRUGS (5)
  1. HUMIRA [Concomitant]
     Active Substance: ADALIMUMAB
     Indication: PRODUCT USED FOR UNKNOWN INDICATION
     Dosage: UNK
     Route: 065
  2. SYNTHROID [Concomitant]
     Active Substance: LEVOTHYROXINE SODIUM
     Dosage: UNK
  3. ENBREL [Suspect]
     Active Substance: ETANERCEPT
     Indication: PSORIATIC ARTHROPATHY
     Dosage: 50 MG, QWK
     Route: 065
     Dates: start: 2012
  4. REMICADE [Concomitant]
     Active Substance: INFLIXIMAB
     Indication: PRODUCT USED FOR UNKNOWN INDICATION
     Dosage: UNK
     Route: 065
  5. ENBREL [Suspect]
     Active Substance: ETANERCEPT
     Indication: RHEUMATOID ARTHRITIS
     Dosage: 50 MG, QWK
     Route: 065

REACTIONS (14)
  - Rib fracture [Unknown]
  - Macular degeneration [Not Recovered/Not Resolved]
  - Fall [Unknown]
  - Psoriasis [Unknown]
  - Contusion [Unknown]
  - Injection site mass [Unknown]
  - Pain [Unknown]
  - Eye haemorrhage [Unknown]
  - Clavicle fracture [Unknown]
  - Gait disturbance [Unknown]
  - Cataract [Unknown]
  - Periodontal disease [Unknown]
  - Tooth extraction [Unknown]
  - Fatigue [Unknown]

NARRATIVE: CASE EVENT DATE: 20180417
